FAERS Safety Report 7544054-2 (Version None)
Quarter: 2011Q2

REPORT INFORMATION
  Report Type: 
  Country: None (occurrence: None)
  Receive Date: 20110613
  Receipt Date: 20050809
  Transmission Date: 20111010
  Serious: Yes (Other)
  Sender: FDA-Public Use
  Company Number: PHHO2005CA12715

PATIENT
  Sex: Female

DRUGS (9)
  1. SENNOSIDE [Concomitant]
  2. PANTOPRAZOLE SODIUM [Concomitant]
  3. NOVO-DOCUSATE [Concomitant]
  4. TIAZAC [Concomitant]
  5. DILANTIN [Concomitant]
  6. APO-FUROSEMIDE [Concomitant]
  7. ACTONEL [Concomitant]
  8. HYDROCHLOROTHIAZIDE [Concomitant]
  9. SANDOSTATIN LAR [Suspect]
     Indication: ANGIODYSPLASIA
     Dosage: 30 MG, QMO
     Dates: start: 20050620

REACTIONS (2)
  - GASTRIC HAEMORRHAGE [None]
  - ASTHENIA [None]
